FAERS Safety Report 7300957-5 (Version None)
Quarter: 2011Q1

REPORT INFORMATION
  Report Type: 
  Country: None (occurrence: None)
  Receive Date: 20110110
  Receipt Date: 20100910
  Transmission Date: 20110831
  Serious: No
  Sender: FDA-Public Use
  Company Number: 2010IP000113

PATIENT
  Sex: Female

DRUGS (1)
  1. BEPREVE [Suspect]
     Indication: EYE PRURITUS

REACTIONS (1)
  - DRUG INEFFECTIVE [None]
